FAERS Safety Report 8034248-4 (Version None)
Quarter: 2012Q1

REPORT INFORMATION
  Report Type: 
  Country: None (occurrence: None)
  Receive Date: 20120110
  Receipt Date: 20120103
  Transmission Date: 20120608
  Serious: Yes (Other)
  Sender: FDA-Public Use
  Company Number: CHPA2012US000444

PATIENT
  Age: 70 Year
  Sex: Female

DRUGS (2)
  1. TRANSDERM SCOP [Suspect]
     Indication: NAUSEA
     Dosage: 1 PATCH EVERY 3 DAYS
     Route: 062
     Dates: start: 20111222
  2. TRANSDERM SCOP [Suspect]
     Dosage: 1 PATCH, ONCE
     Route: 062
     Dates: start: 20110912, end: 20110914

REACTIONS (2)
  - VESICAL FISTULA [None]
  - NAUSEA [None]
